FAERS Safety Report 5609377-2 (Version None)
Quarter: 2008Q1

REPORT INFORMATION
  Report Type: 
  Country: None (occurrence: None)
  Receive Date: 20080131
  Receipt Date: 20080124
  Transmission Date: 20080703
  Serious: Yes (Other)
  Sender: FDA-Public Use
  Company Number: ES-ROCHE-543081

PATIENT
  Age: 77 Year
  Sex: Male

DRUGS (2)
  1. XELODA [Suspect]
     Indication: RENAL CELL CARCINOMA
     Dosage: FORM REPORTED AS COATED TABLET.
     Route: 048
     Dates: start: 20070101, end: 20071001
  2. GEMZAR [Suspect]
     Indication: RENAL CELL CARCINOMA
     Route: 042
     Dates: start: 20070101, end: 20071001

REACTIONS (1)
  - MEMORY IMPAIRMENT [None]
